FAERS Safety Report 13836276 (Version 2)
Quarter: 2017Q3

REPORT INFORMATION
  Report Type: Spontaneous
  Country: VN (occurrence: VN)
  Receive Date: 20170804
  Receipt Date: 20170804
  Transmission Date: 20171127
  Serious: Yes (Hospitalization)
  Sender: FDA-Public Use
  Company Number: PHHY2017VN111842

PATIENT
  Age: 34 Year

DRUGS (4)
  1. SIMULECT [Suspect]
     Active Substance: BASILIXIMAB
     Indication: RENAL TRANSPLANT
     Dosage: UNK
     Route: 065
     Dates: start: 201610
  2. CICLOSPORIN [Suspect]
     Active Substance: CYCLOSPORINE
     Indication: RENAL TRANSPLANT
     Dosage: UNK
     Route: 065
     Dates: start: 201610
  3. MYCOPHENOLATE [Suspect]
     Active Substance: MYCOPHENOLIC ACID
     Indication: RENAL TRANSPLANT
     Dosage: UNK
     Route: 065
     Dates: start: 201610
  4. PREDNISONE. [Suspect]
     Active Substance: PREDNISONE
     Indication: RENAL TRANSPLANT
     Dosage: UNK
     Route: 065
     Dates: start: 201610

REACTIONS (12)
  - Renal vein thrombosis [Recovering/Resolving]
  - Blood creatinine increased [Recovering/Resolving]
  - Complications of transplant surgery [Recovering/Resolving]
  - Acute kidney injury [Recovering/Resolving]
  - Activated partial thromboplastin time shortened [Recovering/Resolving]
  - Abdominal distension [Recovering/Resolving]
  - Pelvic venous thrombosis [Recovering/Resolving]
  - Pelvic pain [Recovering/Resolving]
  - Deep vein thrombosis [Recovering/Resolving]
  - Coagulation factor IX level increased [Recovering/Resolving]
  - Oedema peripheral [Recovering/Resolving]
  - Plasminogen activator inhibitor increased [Recovering/Resolving]

NARRATIVE: CASE EVENT DATE: 20170626
